FAERS Safety Report 7138174-4 (Version None)
Quarter: 2010Q4

REPORT INFORMATION
  Report Type: 
  Country: None (occurrence: None)
  Receive Date: 20101103
  Receipt Date: 20100319
  Transmission Date: 20110411
  Serious: Yes (Other)
  Sender: FDA-Public Use
  Company Number: US-WYE-H14213510

PATIENT
  Age: 53 Year
  Sex: Female
  Weight: 99.88 kg

DRUGS (1)
  1. EFFEXOR XR [Suspect]
     Indication: DEPRESSION
     Dosage: ^SMALL DOSE^ (START DATE UNKNOWN) INCREASED 150 DAILY DISCONTINUED 15-MAR-2010, ORAL

REACTIONS (4)
  - CONVULSION [None]
  - DRUG WITHDRAWAL SYNDROME [None]
  - PARAESTHESIA [None]
  - UNEVALUABLE EVENT [None]
